FAERS Safety Report 9341551 (Version 1)
Quarter: 2013Q2

REPORT INFORMATION
  Report Type: Spontaneous
  Country: DE (occurrence: CA)
  Receive Date: 20130611
  Receipt Date: 20130611
  Transmission Date: 20140414
  Serious: Yes (Other)
  Sender: FDA-Public Use
  Company Number: 2013SP001552

PATIENT
  Age: 59 Year
  Sex: Female

DRUGS (4)
  1. ALVESCO INHALATION AEROSOL [Suspect]
     Indication: ASTHMA
     Route: 055
     Dates: start: 20100629
  2. SALBUTAMOL [Concomitant]
     Indication: PRODUCT USED FOR UNKNOWN INDICATION
  3. CELEXA /00582602/ [Concomitant]
     Indication: PRODUCT USED FOR UNKNOWN INDICATION
  4. REMERON [Concomitant]
     Indication: PRODUCT USED FOR UNKNOWN INDICATION

REACTIONS (1)
  - Palpitations [Recovered/Resolved]
